FAERS Safety Report 25911159 (Version 1)
Quarter: 2025Q4

REPORT INFORMATION
  Report Type: Spontaneous
  Country: EU (occurrence: None)
  Receive Date: 20251013
  Receipt Date: 20251013
  Transmission Date: 20260118
  Serious: Yes (Other)
  Sender: ENCUBE ETHICALS PVT. LTD.
  Company Number: EU-Encube-002508

PATIENT
  Age: 78 Year
  Sex: Female

DRUGS (8)
  1. METRONIDAZOLE [Suspect]
     Active Substance: METRONIDAZOLE
     Indication: Liver abscess
  2. CEFUROXIME [Concomitant]
     Active Substance: CEFUROXIME
     Indication: Liver abscess
  3. METRONIDAZOLE [Suspect]
     Active Substance: METRONIDAZOLE
     Indication: Liver abscess
     Route: 048
  4. CEFUROXIME [Concomitant]
     Active Substance: CEFUROXIME
     Indication: Liver abscess
     Route: 048
  5. METRONIDAZOLE [Suspect]
     Active Substance: METRONIDAZOLE
     Indication: Fusobacterium infection
  6. METRONIDAZOLE [Suspect]
     Active Substance: METRONIDAZOLE
     Indication: Fusobacterium infection
     Route: 048
  7. CEFUROXIME [Concomitant]
     Active Substance: CEFUROXIME
     Indication: Fusobacterium infection
  8. CEFUROXIME [Concomitant]
     Active Substance: CEFUROXIME
     Indication: Fusobacterium infection
     Route: 048

REACTIONS (2)
  - Toxic encephalopathy [Recovering/Resolving]
  - Off label use [Unknown]
